FAERS Safety Report 10640354 (Version 1)
Quarter: 2014Q4

REPORT INFORMATION
  Report Type: Spontaneous
  Country: US (occurrence: None)
  Receive Date: 20141205
  Receipt Date: 20141205
  Transmission Date: 20150529
  Serious: Yes (Hospitalization)
  Sender: FDA-Public Use
  Company Number: None

PATIENT
  Age: 62 Year
  Sex: Male
  Weight: 132.54 kg

DRUGS (6)
  1. DOXORUBICIN HYDROCHLORIDE. [Suspect]
     Active Substance: DOXORUBICIN HYDROCHLORIDE
  2. RITUXIMAB (MOAB C2B8 ANTI CD20, CHIMERIC) [Suspect]
     Active Substance: RITUXIMAB
  3. ETOPOSIDE (VP-16) [Suspect]
     Active Substance: ETOPOSIDE
  4. CYCLOPHOSPHAMIDE. [Suspect]
     Active Substance: CYCLOPHOSPHAMIDE
  5. PREDNISONE. [Suspect]
     Active Substance: PREDNISONE
  6. VINCRISTINE SULFATE. [Suspect]
     Active Substance: VINCRISTINE SULFATE

REACTIONS (6)
  - Erythema [None]
  - Chills [None]
  - Pseudomonas test positive [None]
  - Cough [None]
  - Pain [None]
  - Device related infection [None]

NARRATIVE: CASE EVENT DATE: 20141128
